FAERS Safety Report 20895435 (Version 1)
Quarter: 2022Q2

REPORT INFORMATION
  Report Type: Spontaneous
  Country: US (occurrence: None)
  Receive Date: 20220528
  Receipt Date: 20220528
  Transmission Date: 20220721
  Serious: No
  Sender: FDA-Public Use
  Company Number: None

PATIENT
  Age: 32 Year
  Sex: Female
  Weight: 61.65 kg

DRUGS (1)
  1. DEXTROAMPHET SACCHARAT, AMPHET ASPARTATE, DEXTROAMPHET SULFATE AND AMP [Suspect]
     Active Substance: AMPHETAMINE ASPARTATE\AMPHETAMINE SULFATE\DEXTROAMPHETAMINE SACCHARATE\DEXTROAMPHETAMINE SULFATE
     Indication: Attention deficit hyperactivity disorder
     Dosage: OTHER QUANTITY : 80 CAPSULE(S);?
     Route: 048
     Dates: start: 20220521, end: 20220528

REACTIONS (12)
  - Product substitution issue [None]
  - Lethargy [None]
  - Fatigue [None]
  - Nausea [None]
  - Dizziness [None]
  - Depression [None]
  - Panic disorder [None]
  - Anxiety [None]
  - Derealisation [None]
  - Apathy [None]
  - Mental impairment [None]
  - General physical health deterioration [None]

NARRATIVE: CASE EVENT DATE: 20220523
